FAERS Safety Report 8567290 (Version 5)
Quarter: 2014Q2

REPORT INFORMATION
  Report Type: Spontaneous
  Country: CA (occurrence: CA)
  Receive Date: 20120517
  Receipt Date: 20140417
  Transmission Date: 20141212
  Serious: Yes (Hospitalization)
  Sender: FDA-Public Use
  Company Number: CA-GLAXOSMITHKLINE-A0946666A

PATIENT
  Age: 43 Year
  Sex: Male
  Weight: 86.4 kg

DRUGS (18)
  1. ADVAIR [Suspect]
     Indication: ASTHMA
     Dosage: 1PUFF TWICE PER DAY
     Route: 055
     Dates: start: 2006
  2. BECLOMETHASONE [Suspect]
     Indication: PRODUCT USED FOR UNKNOWN INDICATION
     Dosage: 4SPR TWICE PER DAY
     Route: 045
  3. VENTOLIN [Concomitant]
     Dosage: 2PUFF TWICE PER DAY
  4. METFORMIN [Concomitant]
     Dosage: 125MG TWICE PER DAY
  5. BISOPROLOL [Concomitant]
     Dosage: 2.5MG PER DAY
  6. RAMIPRIL [Concomitant]
     Dosage: 10MG PER DAY
  7. ATROVENT [Concomitant]
     Route: 065
  8. COGENTIN [Concomitant]
  9. LITHIUM CARBONATE [Concomitant]
     Dosage: 900MG AT NIGHT
     Route: 065
  10. DOCUSATE [Concomitant]
     Dosage: 100MG TWICE PER DAY
     Route: 065
  11. MULTIVITAMIN [Concomitant]
  12. LOXAPINE [Concomitant]
  13. PANTOPRAZOLE [Concomitant]
     Route: 065
  14. TRIHEXYPHENIDYL [Concomitant]
     Dosage: 2MG PER DAY
     Route: 065
  15. ZOPICLONE [Concomitant]
     Dosage: 15MG AT NIGHT
  16. UNSPECIFIED MEDICATION [Concomitant]
  17. SINGULAIR [Concomitant]
     Dosage: 10MG AT NIGHT
  18. SEROQUEL [Concomitant]
     Dosage: 600MG UNKNOWN

REACTIONS (19)
  - Pneumonia [Recovering/Resolving]
  - Dry mouth [Unknown]
  - Oral disorder [Unknown]
  - Tongue discolouration [Not Recovered/Not Resolved]
  - Cough [Recovering/Resolving]
  - Wheezing [Recovering/Resolving]
  - Vomiting [Recovering/Resolving]
  - Glossodynia [Not Recovered/Not Resolved]
  - Upper respiratory tract infection [Recovering/Resolving]
  - Malaise [Recovering/Resolving]
  - Overdose [Unknown]
  - Angina pectoris [Unknown]
  - Dyspnoea [Recovered/Resolved]
  - Stress [Unknown]
  - Sinusitis [Recovered/Resolved]
  - Upper-airway cough syndrome [Unknown]
  - Muscle spasms [Recovered/Resolved]
  - Insomnia [Recovered/Resolved]
  - Vomiting [Recovered/Resolved]
